FAERS Safety Report 13680271 (Version 1)
Quarter: 2017Q2

REPORT INFORMATION
  Report Type: Spontaneous
  Country: US (occurrence: US)
  Receive Date: 20170622
  Receipt Date: 20170622
  Transmission Date: 20170830
  Serious: No
  Sender: FDA-Public Use
  Company Number: US-TEVA-779508ACC

PATIENT
  Age: 38 Year
  Sex: Female

DRUGS (13)
  1. COPAXONE [Suspect]
     Active Substance: GLATIRAMER ACETATE
     Indication: MULTIPLE SCLEROSIS
     Dosage: PEN
  2. PREDNISONE. [Concomitant]
     Active Substance: PREDNISONE
  3. ORTHO TRI CYCLEN [Concomitant]
     Active Substance: ETHINYL ESTRADIOL\NORGESTIMATE
  4. DRAMAMINE [Concomitant]
     Active Substance: DIMENHYDRINATE
  5. SUDAFED [Concomitant]
     Active Substance: PSEUDOEPHEDRINE HYDROCHLORIDE
  6. GABAPENTIN. [Concomitant]
     Active Substance: GABAPENTIN
  7. ADVIL [Concomitant]
     Active Substance: IBUPROFEN
  8. LEXAPRO [Concomitant]
     Active Substance: ESCITALOPRAM OXALATE
  9. FISH OIL [Concomitant]
     Active Substance: FISH OIL
  10. CLARITIN [Concomitant]
     Active Substance: LORATADINE
  11. MULTIVITAMIN [Concomitant]
     Active Substance: VITAMINS
  12. BENADRYL   L [Concomitant]
  13. VITAMIN D [Concomitant]
     Active Substance: CHOLECALCIFEROL

REACTIONS (2)
  - Drug dose omission [Unknown]
  - Memory impairment [Unknown]
